FAERS Safety Report 5087964-0 (Version None)
Quarter: 2006Q3

REPORT INFORMATION
  Report Type: 
  Country: None (occurrence: None)
  Receive Date: 20060822
  Receipt Date: 20060822
  Transmission Date: 20061208
  Serious: Yes (Other)
  Sender: FDA-Public Use
  Company Number: None

PATIENT
  Sex: Male
  Weight: 59.8748 kg

DRUGS (2)
  1. PROPECIA [Suspect]
     Indication: ALOPECIA
     Dosage: 30 ONCE DAILY
     Dates: start: 20041101
  2. PROPECIA [Suspect]
     Indication: HAIR TRANSPLANT
     Dosage: 30 ONCE DAILY
     Dates: start: 20041101

REACTIONS (2)
  - PENILE SIZE REDUCED [None]
  - SEMEN VOLUME DECREASED [None]
